FAERS Safety Report 26207710 (Version 1)
Quarter: 2025Q4

REPORT INFORMATION
  Report Type: Report from Study
  Country: US (occurrence: US)
  Receive Date: 20251229
  Receipt Date: 20251229
  Transmission Date: 20260119
  Serious: No
  Sender: ACADIA PHARMACEUTICALS
  Company Number: US-ACADIA PHARMACEUTICALS INC.-ACA-2022-PIM-002684

PATIENT
  Sex: Male

DRUGS (2)
  1. NUPLAZID [Suspect]
     Active Substance: PIMAVANSERIN TARTRATE
     Indication: Product used for unknown indication
     Dosage: 34 MILLIGRAM, QD
     Route: 048
     Dates: start: 20251125
  2. INBRIJA [Concomitant]
     Active Substance: LEVODOPA
     Indication: Parkinsonism
     Dosage: 42 MILLIGRAM (TWO CAPSULES 3-4 TIMES A DAY))
     Dates: start: 20251016

REACTIONS (1)
  - Fall [Not Recovered/Not Resolved]
